FAERS Safety Report 4888848-0 (Version None)
Quarter: 2006Q1

REPORT INFORMATION
  Report Type: 
  Country: None (occurrence: None)
  Receive Date: 20060123
  Receipt Date: 20051001
  Transmission Date: 20060701
  Serious: Yes (Other)
  Sender: FDA-Public Use
  Company Number: PR-MERCK-0510USA01055

PATIENT
  Age: 45 Year
  Sex: Female

DRUGS (1)
  1. VIOXX [Suspect]
     Route: 048

REACTIONS (13)
  - ANGINA PECTORIS [None]
  - ARRHYTHMIA [None]
  - CARDIOVASCULAR DISORDER [None]
  - CEREBROVASCULAR ACCIDENT [None]
  - GASTRITIS [None]
  - HELICOBACTER PYLORI IDENTIFICATION TEST POSITIVE [None]
  - HEPATIC STEATOSIS [None]
  - HEPATOMEGALY [None]
  - MYOCARDIAL INFARCTION [None]
  - ORGAN FAILURE [None]
  - OSTEOARTHRITIS [None]
  - PULMONARY EMBOLISM [None]
  - THROMBOSIS [None]
